FAERS Safety Report 24241996 (Version 2)
Quarter: 2024Q4

REPORT INFORMATION
  Report Type: Other
  Country: FR (occurrence: FR)
  Receive Date: 20240823
  Receipt Date: 20241010
  Transmission Date: 20250115
  Serious: Yes (Hospitalization)
  Sender: ZYDUS PHARM
  Company Number: None

PATIENT

DRUGS (9)
  1. ACETAMINOPHEN [Suspect]
     Active Substance: ACETAMINOPHEN
     Indication: Intentional overdose
     Dosage: UNK
     Route: 048
     Dates: start: 20240721, end: 20240721
  2. TRAMADOL [Suspect]
     Active Substance: TRAMADOL
     Indication: Intentional overdose
     Dosage: UNK
     Route: 048
     Dates: start: 20240721, end: 20240721
  3. IBUPROFEN [Suspect]
     Active Substance: IBUPROFEN
     Indication: Intentional overdose
     Dosage: UNK
     Route: 048
     Dates: start: 20240721, end: 20240721
  4. ZOLPIDEM [Suspect]
     Active Substance: ZOLPIDEM TARTRATE
     Indication: Intentional overdose
     Dosage: UNK
     Route: 048
     Dates: start: 20240721, end: 20240721
  5. ATARAX [Suspect]
     Active Substance: HYDROXYZINE HYDROCHLORIDE
     Indication: Intentional overdose
     Dosage: UNK
     Route: 048
     Dates: start: 20240721, end: 20240721
  6. CODEINE [Suspect]
     Active Substance: CODEINE
     Indication: Intentional overdose
     Dosage: NP
     Route: 048
     Dates: start: 20240721, end: 20240721
  7. CODEINE [Suspect]
     Active Substance: CODEINE
     Indication: Intentional overdose
  8. KETOPROFEN [Suspect]
     Active Substance: KETOPROFEN
     Indication: Intentional overdose
     Dosage: UNK
     Route: 048
     Dates: start: 20240721, end: 20240721
  9. ACETAMINOPHEN\CODEINE PHOSPHATE [Suspect]
     Active Substance: ACETAMINOPHEN\CODEINE PHOSPHATE
     Indication: Intentional overdose
     Dosage: UNK
     Route: 048
     Dates: start: 20240721, end: 20240721

REACTIONS (3)
  - Metabolic acidosis [Recovered/Resolved]
  - Coma [Recovered/Resolved]
  - Poisoning deliberate [Recovered/Resolved]

NARRATIVE: CASE EVENT DATE: 20240721
